FAERS Safety Report 20020737 (Version 1)
Quarter: 2021Q4

REPORT INFORMATION
  Report Type: Report from Study
  Country: PH (occurrence: PH)
  Receive Date: 20211101
  Receipt Date: 20211101
  Transmission Date: 20220303
  Serious: Yes (Death)
  Sender: FDA-Public Use
  Company Number: PH-NOVARTISPH-NVSC2021PH248273

PATIENT
  Age: 60 Year
  Sex: Female

DRUGS (1)
  1. RIBOCICLIB [Suspect]
     Active Substance: RIBOCICLIB
     Indication: Hormone receptor positive HER2 negative breast cancer
     Dosage: 200 MG, TID
     Route: 048
     Dates: start: 20210831

REACTIONS (4)
  - Acute respiratory failure [Fatal]
  - Dyspnoea [Fatal]
  - Asthenia [Fatal]
  - Inappropriate schedule of product administration [Unknown]
